FAERS Safety Report 18256441 (Version 2)
Quarter: 2020Q3

REPORT INFORMATION
  Report Type: Spontaneous
  Country: US (occurrence: US)
  Receive Date: 20200911
  Receipt Date: 20200914
  Transmission Date: 20201103
  Serious: Yes (Other)
  Sender: FDA-Public Use
  Company Number: US-PFIZER INC-2020349678

PATIENT
  Age: 68 Year
  Sex: Male

DRUGS (2)
  1. ALBUMIN [Suspect]
     Active Substance: ALBUMIN HUMAN
     Indication: PLASMAPHERESIS
     Dosage: UNK, (25% SOLUTION)
  2. WATER BACTERIOSTATIC [Suspect]
     Active Substance: WATER
     Indication: PLASMAPHERESIS
     Dosage: UNK, (4 VOLUMES FOR INJECTION)

REACTIONS (3)
  - Haemolysis [Recovered/Resolved]
  - Off label use [Unknown]
  - Product use in unapproved indication [Unknown]
